FAERS Safety Report 18144293 (Version 1)
Quarter: 2020Q3

REPORT INFORMATION
  Report Type: Spontaneous
  Country: US (occurrence: US)
  Receive Date: 20200812
  Receipt Date: 20200812
  Transmission Date: 20201103
  Serious: Yes (Hospitalization)
  Sender: FDA-Public Use
  Company Number: None

PATIENT
  Age: 51 Year
  Sex: Male

DRUGS (13)
  1. PANTOPRAZOLE [Concomitant]
     Active Substance: PANTOPRAZOLE
  2. TRAMADOL HCL [Concomitant]
     Active Substance: TRAMADOL HYDROCHLORIDE
  3. XELODA [Concomitant]
     Active Substance: CAPECITABINE
  4. AMBIEN [Concomitant]
     Active Substance: ZOLPIDEM TARTRATE
  5. CREON [Concomitant]
     Active Substance: PANCRELIPASE AMYLASE\PANCRELIPASE LIPASE\PANCRELIPASE PROTEASE
  6. LEVAQUIN [Concomitant]
     Active Substance: LEVOFLOXACIN
  7. EGESTROL AC [Concomitant]
  8. ATIVAN [Concomitant]
     Active Substance: LORAZEPAM
  9. DILANTIN [Concomitant]
     Active Substance: PHENYTOIN
  10. OXYCODONE AND ACETAMINOPHEN [Concomitant]
     Active Substance: ACETAMINOPHEN\OXYCODONE HYDROCHLORIDE
  11. PROMETHAZINE [Concomitant]
     Active Substance: PROMETHAZINE HYDROCHLORIDE
  12. NEURONTIN [Concomitant]
     Active Substance: GABAPENTIN
  13. CAPECITABINE 500MG [Suspect]
     Active Substance: CAPECITABINE
     Indication: PANCREATIC CARCINOMA
     Dosage: RROUTE: PO ? MON ? FRI
     Route: 048
     Dates: start: 20190330

REACTIONS (3)
  - Sepsis [None]
  - Liver disorder [None]
  - Embolism [None]

NARRATIVE: CASE EVENT DATE: 20200811
